FAERS Safety Report 18619348 (Version 1)
Quarter: 2020Q4

REPORT INFORMATION
  Report Type: Spontaneous
  Country: US (occurrence: US)
  Receive Date: 20201215
  Receipt Date: 20201215
  Transmission Date: 20210114
  Serious: No
  Sender: FDA-Public Use
  Company Number: US-LUPIN PHARMACEUTICALS INC.-2020-08403

PATIENT
  Age: 50 Year
  Sex: Female

DRUGS (8)
  1. LIRAGLUTIDE [Suspect]
     Active Substance: LIRAGLUTIDE
     Indication: TYPE 2 DIABETES MELLITUS
     Dosage: 1.2 MILLIGRAM, QD
     Route: 065
  2. INSULIN GLARGINE [Suspect]
     Active Substance: INSULIN GLARGINE
     Dosage: 40 INTERNATIONAL UNIT, QD
     Route: 065
  3. INSULIN LISPRO [Suspect]
     Active Substance: INSULIN LISPRO
     Indication: TYPE 2 DIABETES MELLITUS
     Dosage: 10 INTERNATIONAL UNIT, QD (WITH DINNER (PRANDIAL))
     Route: 065
  4. INSULIN LISPRO [Suspect]
     Active Substance: INSULIN LISPRO
     Dosage: 50 INTERNATIONAL UNIT, TID
     Route: 065
  5. METFORMIN [Suspect]
     Active Substance: METFORMIN HYDROCHLORIDE
     Indication: TYPE 2 DIABETES MELLITUS
     Dosage: 1 GRAM, BID
     Route: 065
  6. INSULIN GLARGINE [Suspect]
     Active Substance: INSULIN GLARGINE
     Dosage: 14 INTERNATIONAL UNIT, QD
     Route: 065
  7. INSULIN LISPRO [Suspect]
     Active Substance: INSULIN LISPRO
     Dosage: 20 INTERNATIONAL UNIT, TID
     Route: 065
  8. INSULIN GLARGINE [Suspect]
     Active Substance: INSULIN GLARGINE
     Indication: TYPE 2 DIABETES MELLITUS
     Dosage: 50 INTERNATIONAL UNIT, QD (INJECTION VIAL)
     Route: 065

REACTIONS (1)
  - Hypoglycaemia [Recovering/Resolving]
